FAERS Safety Report 21970208 (Version 1)
Quarter: 2023Q1

REPORT INFORMATION
  Report Type: Spontaneous
  Country: JP (occurrence: JP)
  Receive Date: 20230209
  Receipt Date: 20230209
  Transmission Date: 20230417
  Serious: Yes (Other)
  Sender: FDA-Public Use
  Company Number: JP-SAKK-2023SA029529AA

PATIENT
  Age: 71 Year
  Sex: Female

DRUGS (6)
  1. SARCLISA [Suspect]
     Active Substance: ISATUXIMAB-IRFC
     Indication: Plasma cell myeloma
     Dosage: DAILY DOSE: 500 MG, QM
     Route: 041
     Dates: start: 20201027, end: 20221224
  2. POMALIDOMIDE [Concomitant]
     Active Substance: POMALIDOMIDE
     Indication: Plasma cell myeloma
     Dosage: DAILY DOSE: 1 MG, Q3W
     Route: 065
     Dates: start: 20190522
  3. DEXAMETHASONE [Concomitant]
     Active Substance: DEXAMETHASONE
     Indication: Plasma cell myeloma
     Dosage: DAILY DOSE: 10 MG, FREQUENCY: BEFORE SARCLISA ADMINISTRATION
     Route: 065
     Dates: start: 20201027, end: 20221224
  4. CALONAL [Concomitant]
     Active Substance: ACETAMINOPHEN
     Indication: Plasma cell myeloma
     Dosage: DAILY DOSE: 500 MG, FREQUENCY: BEFORE SARCLISA ADMINISTRATION
     Route: 065
     Dates: start: 20201027, end: 20221224
  5. GASTER [Concomitant]
     Active Substance: FAMOTIDINE
     Indication: Plasma cell myeloma
     Dosage: DAILY DOSE: 20 MG, FREQUENCY: BEFORE SARCLISA ADMINISTRATION
     Route: 065
     Dates: start: 20201027, end: 20221224
  6. CHLORPHENIRAMINE MALEATE [Concomitant]
     Active Substance: CHLORPHENIRAMINE MALEATE
     Indication: Plasma cell myeloma
     Dosage: DAILY DOSE: 10 MG, FREQUENCY: BEFORE SARCLISA ADMINISTRATION
     Route: 065
     Dates: start: 20201027, end: 20221224

REACTIONS (1)
  - Arthralgia [Recovering/Resolving]

NARRATIVE: CASE EVENT DATE: 20220826
